FAERS Safety Report 24440907 (Version 1)
Quarter: 2024Q4

REPORT INFORMATION
  Report Type: Report from Study
  Country: US (occurrence: US)
  Receive Date: 20241016
  Receipt Date: 20241016
  Transmission Date: 20250114
  Serious: Yes (Other)
  Sender: JOHNSON AND JOHNSON
  Company Number: US-JNJFOC-20241030004

PATIENT
  Age: 25 Year
  Sex: Male

DRUGS (3)
  1. SPRAVATO [Suspect]
     Active Substance: ESKETAMINE
     Indication: Depression
     Dosage: ^56 MG, 6 TOTAL DOSES^
     Dates: start: 20240820, end: 20240930
  2. SPRAVATO [Suspect]
     Active Substance: ESKETAMINE
     Dosage: ^1 TOTAL DOSE^
     Dates: start: 20241001, end: 20241001
  3. SPRAVATO [Suspect]
     Active Substance: ESKETAMINE
     Dosage: ^56 MG, 1 TOTAL DOSE^
     Dates: start: 20241003, end: 20241003

REACTIONS (3)
  - Bipolar disorder [Unknown]
  - Product dose omission issue [Unknown]
  - Autoscopy [Unknown]

NARRATIVE: CASE EVENT DATE: 20240901
